FAERS Safety Report 7801021-9 (Version None)
Quarter: 2011Q4

REPORT INFORMATION
  Report Type: 
  Country: None (occurrence: None)
  Receive Date: 20111007
  Receipt Date: 20110930
  Transmission Date: 20120403
  Serious: No
  Sender: FDA-Public Use
  Company Number: US-BIOGENIDEC-2010BI018599

PATIENT
  Age: 41 Year
  Sex: Female

DRUGS (1)
  1. TYSABRI [Suspect]
     Indication: MULTIPLE SCLEROSIS
     Route: 042
     Dates: start: 20090105

REACTIONS (10)
  - PAIN [None]
  - JOINT SWELLING [None]
  - WEIGHT INCREASED [None]
  - MEMORY IMPAIRMENT [None]
  - MUSCLE SPASMS [None]
  - NASOPHARYNGITIS [None]
  - SOMNOLENCE [None]
  - FATIGUE [None]
  - COUGH [None]
  - STRESS [None]
